FAERS Safety Report 9736570 (Version 1)
Quarter: 2013Q4

REPORT INFORMATION
  Report Type: Spontaneous
  Country: US (occurrence: US)
  Receive Date: 20131206
  Receipt Date: 20131206
  Transmission Date: 20140711
  Serious: No
  Sender: FDA-Public Use
  Company Number: US-BIOGENIDEC-2013BI097906

PATIENT
  Sex: Female

DRUGS (11)
  1. TECFIDERA [Suspect]
     Indication: PRODUCT USED FOR UNKNOWN INDICATION
     Route: 048
     Dates: start: 20130913
  2. TECFIDERA [Suspect]
     Indication: PRODUCT USED FOR UNKNOWN INDICATION
     Route: 048
     Dates: start: 20130920
  3. RA BLACK COHOSH [Concomitant]
  4. VITAMIN C [Concomitant]
  5. VITAMIN B12 [Concomitant]
  6. VITAMIN D3 [Concomitant]
  7. COD LIVER OIL [Concomitant]
  8. MAGNESIUM [Concomitant]
  9. QUETIAPINE FUMARATE [Concomitant]
  10. NORTRIPTYLINE [Concomitant]
  11. QUINAPRIL [Concomitant]

REACTIONS (1)
  - Drug intolerance [Unknown]
